FAERS Safety Report 4358924-X (Version None)
Quarter: 2004Q2

REPORT INFORMATION
  Report Type: 
  Country: None (occurrence: None)
  Receive Date: 20040512
  Receipt Date: 20040426
  Transmission Date: 20050107
  Serious: Yes (Hospitalization)
  Sender: FDA-Public Use
  Company Number: ALMO2004012

PATIENT
  Age: 44 Year
  Sex: Female

DRUGS (1)
  1. ALMOGRAN [Suspect]
     Indication: MIGRAINE
     Dosage: 1 DF DAILY PO
     Route: 048

REACTIONS (3)
  - ANTINUCLEAR ANTIBODY POSITIVE [None]
  - BLOOD HOMOCYSTEINE INCREASED [None]
  - BRAIN STEM INFARCTION [None]
